FAERS Safety Report 10028420 (Version 1)
Quarter: 2014Q1

REPORT INFORMATION
  Report Type: Spontaneous
  Country: US (occurrence: None)
  Receive Date: 20140307
  Receipt Date: 20140307
  Transmission Date: 20141002
  Serious: Yes (Other)
  Sender: FDA-Public Use
  Company Number: SYM-2014-17990

PATIENT
  Age: 21 Year
  Sex: Male

DRUGS (1)
  1. MINOCYCLINE [Suspect]
     Indication: ACNE

REACTIONS (10)
  - Arthralgia [None]
  - Fatigue [None]
  - Weight decreased [None]
  - Livedo reticularis [None]
  - Testicular pain [None]
  - Varicocele [None]
  - Testicular mass [None]
  - Diarrhoea [None]
  - Nipple pain [None]
  - Lymphadenopathy [None]
